FAERS Safety Report 18606060 (Version 1)
Quarter: 2020Q4

REPORT INFORMATION
  Report Type: Spontaneous
  Country: FR (occurrence: FR)
  Receive Date: 20201211
  Receipt Date: 20201211
  Transmission Date: 20210114
  Serious: Yes (Other)
  Sender: FDA-Public Use
  Company Number: NVSC2020FR327958

PATIENT
  Age: 44 Year
  Sex: Female

DRUGS (2)
  1. KETAMINE [Concomitant]
     Active Substance: KETAMINE
     Indication: NEUROPATHY PERIPHERAL
     Dosage: UNK (TRIMESTRAL)
     Route: 065
  2. GABAPENTIN. [Suspect]
     Active Substance: GABAPENTIN
     Indication: NEUROPATHY PERIPHERAL
     Dosage: UNK
     Route: 065

REACTIONS (1)
  - Platelet disorder [Recovered/Resolved]
